FAERS Safety Report 22359308 (Version 1)
Quarter: 2023Q2

REPORT INFORMATION
  Report Type: Report from Study
  Country: US (occurrence: US)
  Receive Date: 20230524
  Receipt Date: 20230524
  Transmission Date: 20230722
  Serious: No
  Sender: FDA-Public Use
  Company Number: US-002147023-NVSC2023US113691

PATIENT
  Sex: Female

DRUGS (5)
  1. TRIAMCINOLONE [Suspect]
     Active Substance: TRIAMCINOLONE
     Indication: Pityriasis rubra pilaris
     Dosage: UNK
     Route: 065
  2. CLOBETASOL [Suspect]
     Active Substance: CLOBETASOL
     Indication: Pityriasis rubra pilaris
     Dosage: UNK
     Route: 065
  3. ACITRETIN [Suspect]
     Active Substance: ACITRETIN
     Indication: Pityriasis rubra pilaris
     Dosage: UNK
     Route: 065
  4. IMIQUIMOD [Suspect]
     Active Substance: IMIQUIMOD
     Indication: Pityriasis rubra pilaris
     Dosage: UNK
     Route: 065
  5. ELIDEL [Suspect]
     Active Substance: PIMECROLIMUS
     Indication: Pityriasis rubra pilaris
     Dosage: UNK
     Route: 065

REACTIONS (22)
  - Neoplasm skin [Unknown]
  - Skin exfoliation [Unknown]
  - Lip dry [Unknown]
  - Dry skin [Unknown]
  - Skin lesion [Unknown]
  - Macule [Unknown]
  - Actinic keratosis [Unknown]
  - Scar [Unknown]
  - Eschar [Unknown]
  - Periorbital disorder [Unknown]
  - Skin plaque [Unknown]
  - Skin discolouration [Unknown]
  - Rash erythematous [Unknown]
  - Papule [Unknown]
  - Erythema [Unknown]
  - Lentigo [Unknown]
  - Sunburn [Unknown]
  - Seborrhoeic keratosis [Unknown]
  - Skin fissures [Unknown]
  - Pruritus [Unknown]
  - Rash [Unknown]
  - Therapeutic product effect incomplete [Unknown]
